FAERS Safety Report 13260437 (Version 1)
Quarter: 2017Q1

REPORT INFORMATION
  Report Type: Spontaneous
  Country: US (occurrence: US)
  Receive Date: 20170221
  Receipt Date: 20170221
  Transmission Date: 20170428
  Serious: No
  Sender: FDA-Public Use
  Company Number: None

PATIENT
  Age: 67 Year
  Sex: Male
  Weight: 111.2 kg

DRUGS (2)
  1. LEDIPASVIR/SOFOSBUVIR [Suspect]
     Active Substance: LEDIPASVIR\SOFOSBUVIR
     Dosage: MG EVERY DAY PO
     Route: 048
     Dates: start: 20160616, end: 20161004
  2. MORPHINE [Suspect]
     Active Substance: MORPHINE
     Route: 048
     Dates: start: 20160824, end: 20160826

REACTIONS (2)
  - Depressed level of consciousness [None]
  - Respiratory depression [None]

NARRATIVE: CASE EVENT DATE: 20160712
